FAERS Safety Report 20880653 (Version 2)
Quarter: 2022Q2

REPORT INFORMATION
  Report Type: Spontaneous
  Country: CN (occurrence: CN)
  Receive Date: 20220526
  Receipt Date: 20220601
  Transmission Date: 20220721
  Serious: Yes (Other)
  Sender: FDA-Public Use
  Company Number: CN-GILEAD-2022-0582923

PATIENT
  Age: 40 Year
  Sex: Female

DRUGS (2)
  1. VEMLIDY [Suspect]
     Active Substance: TENOFOVIR ALAFENAMIDE FUMARATE
     Indication: Hepatitis B
     Dosage: 1 DOSAGE FORM, QD (REPORTED ON 24-MAY-2022 STARTED TAKING 3-4 YEARS AGO)
     Route: 065
  2. TOREMIFENE CITRATE [Concomitant]
     Active Substance: TOREMIFENE CITRATE

REACTIONS (1)
  - Breast cancer [Recovered/Resolved]

NARRATIVE: CASE EVENT DATE: 20210701
